FAERS Safety Report 8426008 (Version 3)
Quarter: 2013Q3

REPORT INFORMATION
  Report Type: Spontaneous
  Country: US (occurrence: US)
  Receive Date: 20120224
  Receipt Date: 20130820
  Transmission Date: 20140515
  Serious: Yes (Other)
  Sender: FDA-Public Use
  Company Number: US-PFIZER INC-2012025952

PATIENT
  Age: 59 Year
  Sex: Male
  Weight: 72.56 kg

DRUGS (3)
  1. LYRICA [Suspect]
     Indication: NEUROPATHY PERIPHERAL
     Dosage: 100 MG, 3X/DAY
  2. CARVEDILOL [Concomitant]
     Indication: CARDIAC DISORDER
     Dosage: UNK
  3. PRAVASTATIN [Concomitant]
     Indication: BLOOD CHOLESTEROL INCREASED
     Dosage: UNK

REACTIONS (1)
  - Road traffic accident [Unknown]
